FAERS Safety Report 7278204-2 (Version None)
Quarter: 2011Q1

REPORT INFORMATION
  Report Type: 
  Country: None (occurrence: None)
  Receive Date: 20110207
  Receipt Date: 20110128
  Transmission Date: 20110831
  Serious: Yes (Disabling)
  Sender: FDA-Public Use
  Company Number: B0697934A

PATIENT
  Sex: Female

DRUGS (5)
  1. SINEMET [Concomitant]
     Indication: PARKINSON'S DISEASE
     Dosage: 375MG THREE TIMES PER DAY
     Route: 048
     Dates: start: 20100225
  2. ROPINIROLE [Suspect]
     Indication: PARKINSON'S DISEASE
     Route: 048
     Dates: start: 20101008
  3. UNKNOWN DRUG [Concomitant]
     Indication: PARKINSON'S DISEASE
     Dosage: 375MG THREE TIMES PER DAY
     Route: 048
     Dates: start: 20100225
  4. VITAMIN B6 [Concomitant]
     Indication: PARKINSON'S DISEASE
     Dosage: 30MG THREE TIMES PER DAY
     Route: 048
     Dates: start: 20100225
  5. AMANTADINE HCL [Concomitant]
     Indication: PARKINSON'S DISEASE
     Dosage: 200MG TWICE PER DAY
     Route: 048
     Dates: start: 20100225

REACTIONS (3)
  - URINARY INCONTINENCE [None]
  - MONOPLEGIA [None]
  - SPINAL COMPRESSION FRACTURE [None]
